FAERS Safety Report 8475037-6 (Version None)
Quarter: 2012Q2

REPORT INFORMATION
  Report Type: 
  Country: None (occurrence: None)
  Receive Date: 20120628
  Receipt Date: 20120619
  Transmission Date: 20120825
  Serious: Yes (Other)
  Sender: FDA-Public Use
  Company Number: FR-JNJFOC-20120611668

PATIENT
  Age: 54 Year
  Sex: Male

DRUGS (8)
  1. SOLIAN [Suspect]
     Indication: DEPRESSION
     Route: 048
     Dates: start: 20120322, end: 20120427
  2. DURAGESIC-100 [Suspect]
     Indication: PAIN
     Route: 062
     Dates: start: 20120301, end: 20120424
  3. OXAZEPAM [Suspect]
     Indication: INSOMNIA
     Route: 048
     Dates: start: 20120301, end: 20120427
  4. LORAZEPAM [Suspect]
     Indication: DEPRESSION
     Route: 048
     Dates: start: 20120322, end: 20120427
  5. VALDOXAN (AGOMELATINE) [Suspect]
     Indication: DEPRESSION
     Route: 048
     Dates: start: 20120322, end: 20120427
  6. LORAZEPAM [Suspect]
     Indication: INSOMNIA
     Route: 048
     Dates: start: 20120322, end: 20120427
  7. NOCTAMIDE [Concomitant]
     Indication: DEPRESSION
     Route: 048
     Dates: start: 20120322
  8. NOCTAMIDE [Concomitant]
     Indication: INSOMNIA
     Route: 048
     Dates: start: 20120322

REACTIONS (1)
  - MYOCLONUS [None]
